FAERS Safety Report 24292430 (Version 1)
Quarter: 2024Q3

REPORT INFORMATION
  Report Type: Report from Study
  Country: GB (occurrence: GB)
  Receive Date: 20240906
  Receipt Date: 20240906
  Transmission Date: 20241016
  Serious: Yes (Death, Other)
  Sender: SANDOZ
  Company Number: GB-002147023-NVSC2020GB070282

PATIENT
  Sex: Female

DRUGS (2)
  1. HYRIMOZ [Suspect]
     Active Substance: ADALIMUMAB-ADAZ
     Dosage: 40 MG, E21D (40MG/0.4 ML PRE-FILLED PEN)
     Route: 058
  2. HYRIMOZ [Suspect]
     Active Substance: ADALIMUMAB-ADAZ
     Indication: Crohn^s disease
     Dosage: UNK UNK, Q2W (40 MG)
     Route: 065
     Dates: start: 20190422

REACTIONS (2)
  - Death [Fatal]
  - Skin disorder [Unknown]
